FAERS Safety Report 8942947 (Version 4)
Quarter: 2013Q3

REPORT INFORMATION
  Report Type: Report from Study
  Country: US (occurrence: US)
  Receive Date: 20121204
  Receipt Date: 20130920
  Transmission Date: 20140515
  Serious: Yes (Hospitalization)
  Sender: FDA-Public Use
  Company Number: PHEH2012US023680

PATIENT
  Age: 53 Year
  Sex: Female
  Weight: 58.96 kg

DRUGS (7)
  1. GILENYA [Suspect]
     Indication: MULTIPLE SCLEROSIS
     Dosage: 0.5 MG, QD
     Route: 048
     Dates: start: 20121130
  2. GILENYA [Suspect]
     Dosage: 0.5 MG, QD
     Route: 048
     Dates: start: 20121207
  3. CLONOPIN [Concomitant]
     Dosage: 0.5 MG, QD
     Route: 048
  4. PROVIGIL [Concomitant]
     Dosage: 200 MG, QD
     Route: 048
  5. VESICARE [Concomitant]
     Dosage: 10 MG, QD
     Route: 048
  6. SYNTHROID [Concomitant]
     Route: 048
  7. XANAX [Concomitant]
     Route: 048

REACTIONS (2)
  - Palpitations [Recovered/Resolved]
  - Asthenia [Not Recovered/Not Resolved]
